FAERS Safety Report 11867303 (Version 2)
Quarter: 2016Q1

REPORT INFORMATION
  Report Type: Report from Study
  Country: CH (occurrence: CH)
  Receive Date: 20151224
  Receipt Date: 20160119
  Transmission Date: 20160526
  Serious: Yes (Other)
  Sender: FDA-Public Use
  Company Number: CH-VIIV HEALTHCARE LIMITED-CH2015GSK181081

PATIENT
  Age: 39 Year
  Sex: Male

DRUGS (1)
  1. ABACAVIRSULPHATE+DOLUTEGRAVIR+LAMIVUDINE [Suspect]
     Active Substance: ABACAVIR SULFATE\DOLUTEGRAVIR SODIUM\LAMIVUDINE
     Indication: HIV INFECTION
     Dosage: UNK
     Route: 048

REACTIONS (3)
  - Tuberculosis [Unknown]
  - Virologic failure [Unknown]
  - Liver disorder [Unknown]
